FAERS Safety Report 12918759 (Version 1)
Quarter: 2016Q4

REPORT INFORMATION
  Report Type: Spontaneous
  Country: US (occurrence: US)
  Receive Date: 20161107
  Receipt Date: 20161107
  Transmission Date: 20170207
  Serious: Yes (Other)
  Sender: FDA-Public Use
  Company Number: US-BAYER-2016-209622

PATIENT
  Age: 23 Year
  Sex: Female

DRUGS (1)
  1. SKYLA [Suspect]
     Active Substance: LEVONORGESTREL
     Dosage: 14 MCG/24HR, CONT
     Route: 015
     Dates: start: 20161028, end: 20161029

REACTIONS (8)
  - Genital haemorrhage [None]
  - Cough [None]
  - Activities of daily living impaired [None]
  - Device expulsion [None]
  - Nasopharyngitis [None]
  - Abdominal pain lower [None]
  - Sneezing [None]
  - Menorrhagia [None]

NARRATIVE: CASE EVENT DATE: 2016
